FAERS Safety Report 7676755-X (Version None)
Quarter: 2011Q3

REPORT INFORMATION
  Report Type: 
  Country: None (occurrence: None)
  Receive Date: 20110811
  Receipt Date: 20110803
  Transmission Date: 20111222
  Serious: Yes (Other)
  Sender: FDA-Public Use
  Company Number: FR-JNJFOC-20110600091

PATIENT
  Sex: Male
  Weight: 82 kg

DRUGS (3)
  1. RISPERDAL CONSTA [Suspect]
     Indication: SCHIZOPHRENIA
     Route: 030
     Dates: start: 20110316, end: 20110512
  2. LIPIDIC DRUGS NOS [Concomitant]
     Route: 065
  3. RISPERDAL [Suspect]
     Indication: PRODUCT USED FOR UNKNOWN INDICATION
     Dosage: INITIATED 1 YEAR AGO
     Route: 048

REACTIONS (1)
  - MYOCARDIAL INFARCTION [None]
